FAERS Safety Report 5526977-9 (Version None)
Quarter: 2007Q4

REPORT INFORMATION
  Report Type: 
  Country: None (occurrence: None)
  Receive Date: 20071127
  Receipt Date: 20071113
  Transmission Date: 20080405
  Serious: Yes (Hospitalization)
  Sender: FDA-Public Use
  Company Number: US-ELI_LILLY_AND_COMPANY-US200711003786

PATIENT
  Age: 39 Year
  Sex: Female

DRUGS (8)
  1. CYMBALTA [Suspect]
     Indication: MAJOR DEPRESSION
     Dosage: 30 MG, DAILY (1/D)
     Route: 048
     Dates: start: 20070604
  2. CYMBALTA [Suspect]
     Dosage: 60 MG, DAILY (1/D)
     Route: 048
     Dates: end: 20070926
  3. PROZAC [Concomitant]
     Dosage: 40 MG, DAILY (1/D)
     Dates: end: 20070604
  4. WELLBUTRIN [Concomitant]
     Dosage: 150 MG, DAILY (1/D)
     Dates: end: 20070917
  5. RESTORIL [Concomitant]
     Indication: SLEEP DISORDER
     Dosage: 2 D/F, AS NEEDED
  6. RISPERDAL [Concomitant]
     Dosage: 0.5 MG, 2/D
  7. VISTARIL [Concomitant]
     Dosage: 1 D/F, AS NEEDED
  8. WELLBUTRIN XL [Concomitant]
     Dosage: 150 MG, DAILY (1/D)
     Dates: start: 20070101

REACTIONS (7)
  - CEREBROVASCULAR ACCIDENT [None]
  - HALLUCINATION [None]
  - HALLUCINATION, VISUAL [None]
  - MIGRAINE [None]
  - READING DISORDER [None]
  - SPEECH DISORDER [None]
  - VISUAL DISTURBANCE [None]
